FAERS Safety Report 18890956 (Version 2)
Quarter: 2024Q4

REPORT INFORMATION
  Report Type: Spontaneous
  Country: FR (occurrence: FR)
  Receive Date: 20210215
  Receipt Date: 20241009
  Transmission Date: 20250115
  Serious: Yes (Death, Other)
  Sender: CELLTRION
  Company Number: FR-CELLTRION INC.-2021FR001553

PATIENT

DRUGS (13)
  1. TRUXIMA [Suspect]
     Active Substance: RITUXIMAB-ABBS
     Indication: Adult T-cell lymphoma/leukaemia
     Dosage: 700 MG, TOTAL
     Route: 042
     Dates: start: 20200722, end: 20200722
  2. OXALIPLATIN [Suspect]
     Active Substance: OXALIPLATIN
     Indication: Adult T-cell lymphoma/leukaemia
     Dosage: 160 MG, SINGLE
     Route: 042
     Dates: start: 20200723, end: 20200723
  3. GEMCITABINE [Suspect]
     Active Substance: GEMCITABINE
     Indication: Adult T-cell lymphoma/leukaemia
     Dosage: 1600 MG, TOTAL
     Route: 041
     Dates: start: 20200723, end: 20200723
  4. ESCITALOPRAM [Concomitant]
     Active Substance: ESCITALOPRAM OXALATE
     Dosage: UNK
  5. KARDEGIC [Concomitant]
     Active Substance: ASPIRIN DL-LYSINE
     Dosage: UNK
  6. PROPRANOLOL HYDROCHLORIDE [Concomitant]
     Active Substance: PROPRANOLOL HYDROCHLORIDE
     Dosage: UNK
  7. BROMAZEPAM [Concomitant]
     Active Substance: BROMAZEPAM
     Dosage: UNK
  8. LEVOTHYROXINE [Concomitant]
     Active Substance: LEVOTHYROXINE
     Dosage: UNK
  9. OXAZEPAM [Concomitant]
     Active Substance: OXAZEPAM
     Dosage: UNK
  10. SITAGLIPTIN [Concomitant]
     Active Substance: SITAGLIPTIN
     Dosage: UNK
  11. SPASFON [Concomitant]
     Dosage: UNK
  12. REPAGLINIDE [Concomitant]
     Active Substance: REPAGLINIDE
     Dosage: UNK
  13. MOVICOL [Concomitant]
     Active Substance: POLYETHYLENE GLYCOL 3350\POTASSIUM CHLORIDE\SODIUM BICARBONATE\SODIUM CHLORIDE
     Dosage: UNK

REACTIONS (6)
  - Pulmonary embolism [Fatal]
  - Acute respiratory failure [Fatal]
  - Transaminases increased [Fatal]
  - Agitation [Fatal]
  - Shock [Fatal]
  - Intentional product use issue [Unknown]

NARRATIVE: CASE EVENT DATE: 20200723
